FAERS Safety Report 5194342-2 (Version None)
Quarter: 2006Q4

REPORT INFORMATION
  Report Type: 
  Country: None (occurrence: None)
  Receive Date: 20061228
  Receipt Date: 20060602
  Transmission Date: 20070319
  Serious: Yes (Other)
  Sender: FDA-Public Use
  Company Number: GB-SHR-GB-2006-013748

PATIENT
  Age: 38 Year
  Sex: Female
  Weight: 55 kg

DRUGS (3)
  1. BETAFERON [Suspect]
     Dosage: 250 A?G, UNK
     Route: 058
     Dates: start: 19981005
  2. BACLOFEN [Concomitant]
     Dosage: 10 MG, UNK
     Route: 048
     Dates: start: 20000101
  3. AMITRIPTYLINE HCL [Concomitant]
     Indication: HEADACHE
     Dosage: 10 MG, UNK
     Route: 048
     Dates: start: 20010801

REACTIONS (1)
  - OVARIAN CYST [None]
